FAERS Safety Report 4326337-2 (Version None)
Quarter: 2004Q1

REPORT INFORMATION
  Report Type: 
  Country: None (occurrence: None)
  Receive Date: 20040329
  Receipt Date: 20040329
  Transmission Date: 20041129
  Serious: Yes (Other)
  Sender: FDA-Public Use
  Company Number: None

PATIENT
  Age: 78 Year
  Sex: Female
  Weight: 57.1532 kg

DRUGS (1)
  1. SUCCINYLCHOLINE [Suspect]
     Indication: ANAESTHESIA
     Dosage: 140 MG IV, 40 MG IV
     Route: 042
     Dates: start: 20030801, end: 20030801

REACTIONS (2)
  - CONVULSION [None]
  - DRUG EFFECT DECREASED [None]
